FAERS Safety Report 5955010-X (Version None)
Quarter: 2008Q4

REPORT INFORMATION
  Report Type: 
  Country: None (occurrence: None)
  Receive Date: 20081112
  Receipt Date: 20081031
  Transmission Date: 20090506
  Serious: Yes (Life-Threatening, Hospitalization)
  Sender: FDA-Public Use
  Company Number: 2008AL011677

PATIENT
  Age: 14 Year
  Sex: Female

DRUGS (5)
  1. HYDROCORTISONE 2.5% CREAM [Suspect]
     Indication: COLITIS
     Dosage: 60 MG; QID; IV
     Route: 042
     Dates: start: 20080923, end: 20081021
  2. INFLIXIMAB [Concomitant]
  3. MESALAMINE [Concomitant]
  4. METRONIDAZOLE [Concomitant]
  5. CEFOTAXIME SODIUM [Concomitant]

REACTIONS (2)
  - MEGACOLON [None]
  - REVERSIBLE POSTERIOR LEUKOENCEPHALOPATHY SYNDROME [None]
